FAERS Safety Report 10207520 (Version 1)
Quarter: 2014Q2

REPORT INFORMATION
  Report Type: Spontaneous
  Country: US (occurrence: US)
  Receive Date: 20140530
  Receipt Date: 20140530
  Transmission Date: 20141212
  Serious: No
  Sender: FDA-Public Use
  Company Number: US-GLAXOSMITHKLINE-A1046706A

PATIENT
  Age: 64 Year
  Sex: Female

DRUGS (3)
  1. VENTOLIN [Suspect]
     Indication: WHEEZING
     Dosage: 2PUFF FOUR TIMES PER DAY
     Route: 055
  2. FLOVENT [Concomitant]
  3. SINGULAIR [Concomitant]

REACTIONS (2)
  - Wheezing [Not Recovered/Not Resolved]
  - Product quality issue [Unknown]
